FAERS Safety Report 4755273-2 (Version None)
Quarter: 2005Q3

REPORT INFORMATION
  Report Type: 
  Country: None (occurrence: None)
  Receive Date: 20050829
  Receipt Date: 20050414
  Transmission Date: 20060218
  Serious: Yes (Hospitalization, Other)
  Sender: FDA-Public Use
  Company Number: US-MERCK-0504USA02901

PATIENT
  Age: 66 Year
  Sex: Male
  Weight: 82 kg

DRUGS (8)
  1. VIOXX [Suspect]
     Indication: ANKYLOSING SPONDYLITIS
     Route: 048
     Dates: start: 20001001, end: 20040930
  2. MONOPRIL [Concomitant]
     Indication: HYPERTENSION
     Route: 065
     Dates: start: 20010413
  3. MONOPRIL [Concomitant]
     Route: 065
     Dates: start: 20010413
  4. LASIX [Concomitant]
     Route: 065
     Dates: start: 20010512
  5. LASIX [Concomitant]
     Route: 065
     Dates: start: 20010512
  6. POTASSIUM CHLORIDE [Concomitant]
     Route: 065
  7. VIAGRA [Concomitant]
     Route: 065
  8. YOHIMBINE HYDROCHLORIDE [Concomitant]
     Route: 065

REACTIONS (9)
  - AMNESIA [None]
  - ANGINA PECTORIS [None]
  - CARDIAC FAILURE CONGESTIVE [None]
  - CARDIAC VALVE DISEASE [None]
  - CHRONIC OBSTRUCTIVE PULMONARY DISEASE [None]
  - DYSPNOEA [None]
  - HYPERTENSION [None]
  - INJURY [None]
  - MYOCARDIAL INFARCTION [None]
